FAERS Safety Report 19641718 (Version 1)
Quarter: 2021Q3

REPORT INFORMATION
  Report Type: Spontaneous
  Country: DE (occurrence: DE)
  Receive Date: 20210730
  Receipt Date: 20210730
  Transmission Date: 20211014
  Serious: Yes (Life-Threatening, Hospitalization, Other)
  Sender: FDA-Public Use
  Company Number: DE-MYLANLABS-2021M1047320

PATIENT
  Age: 8 Year
  Sex: Male
  Weight: 27 kg

DRUGS (2)
  1. MEDIKINET                          /00083801/ [Concomitant]
     Active Substance: METHYLPHENIDATE
     Indication: ATTENTION DEFICIT HYPERACTIVITY DISORDER
     Dosage: 5 MILLIGRAM
     Route: 048
     Dates: start: 20181121
  2. IBUPROFEN. [Suspect]
     Active Substance: IBUPROFEN
     Indication: HEADACHE
     Dosage: 250 MILLIGRAM
     Route: 048
     Dates: start: 20181221, end: 20181221

REACTIONS (3)
  - Anaphylactic reaction [Recovering/Resolving]
  - Rash [Recovering/Resolving]
  - Swelling of eyelid [Recovering/Resolving]

NARRATIVE: CASE EVENT DATE: 20181221
